FAERS Safety Report 5097417-1 (Version None)
Quarter: 2006Q3

REPORT INFORMATION
  Report Type: 
  Country: None (occurrence: None)
  Receive Date: 20060905
  Receipt Date: 20060302
  Transmission Date: 20061208
  Serious: Yes (Hospitalization)
  Sender: FDA-Public Use
  Company Number: 2005BH001341

PATIENT

DRUGS (1)
  1. ALBUMIN (HUMAN) [Suspect]
     Indication: ISCHAEMIC STROKE

REACTIONS (1)
  - BRAIN OEDEMA [None]
